FAERS Safety Report 5175074-3 (Version None)
Quarter: 2006Q4

REPORT INFORMATION
  Report Type: 
  Country: None (occurrence: None)
  Receive Date: 20061214
  Receipt Date: 20060525
  Transmission Date: 20070319
  Serious: No
  Sender: FDA-Public Use
  Company Number: US-AMGEN-KDL180991

PATIENT
  Sex: Female

DRUGS (1)
  1. ENBREL [Suspect]
     Indication: PSORIATIC ARTHROPATHY
     Route: 058
     Dates: start: 20051110

REACTIONS (9)
  - ANOREXIA [None]
  - ASTHENIA [None]
  - BRADYCARDIA [None]
  - CONDITION AGGRAVATED [None]
  - EAR PAIN [None]
  - HYPERTENSION [None]
  - NASOPHARYNGITIS [None]
  - PYREXIA [None]
  - THROAT IRRITATION [None]
